FAERS Safety Report 7600335-5 (Version None)
Quarter: 2011Q2

REPORT INFORMATION
  Report Type: 
  Country: None (occurrence: None)
  Receive Date: 20110629
  Receipt Date: 20110621
  Transmission Date: 20111010
  Serious: Yes (Death, Hospitalization)
  Sender: FDA-Public Use
  Company Number: APIR20110021

PATIENT
  Age: 43 Year
  Sex: Female
  Weight: 79.3795 kg

DRUGS (5)
  1. CITALOPRAM HYDROBROMIDE [Concomitant]
  2. ALPRAZOLAM [Suspect]
     Indication: PRODUCT USED FOR UNKNOWN INDICATION
     Dosage: 200 MG, IN 6 DAYS, ORAL
     Route: 048
  3. ZIPRASIDONE (ZIPRASIDONE) (ZIPRASIDONE) [Concomitant]
  4. DIAZEPAM [Concomitant]
  5. ZOLPIDEM (ZOLPIDEM) (ZOLPIDEM) [Concomitant]

REACTIONS (14)
  - HEART RATE INCREASED [None]
  - CYANOSIS [None]
  - BODY TEMPERATURE INCREASED [None]
  - TREMOR [None]
  - OVERDOSE [None]
  - HALLUCINATIONS, MIXED [None]
  - ABNORMAL BEHAVIOUR [None]
  - BLOOD PRESSURE INCREASED [None]
  - MENTAL STATUS CHANGES [None]
  - POSTURING [None]
  - RESPIRATORY ARREST [None]
  - CONVERSION DISORDER [None]
  - WITHDRAWAL SYNDROME [None]
  - INSOMNIA [None]
